FAERS Safety Report 7667544-0 (Version None)
Quarter: 2011Q3

REPORT INFORMATION
  Report Type: 
  Country: None (occurrence: None)
  Receive Date: 20110806
  Receipt Date: 20110512
  Transmission Date: 20111222
  Serious: No
  Sender: FDA-Public Use
  Company Number: US-ABBOTT-11P-163-0725862-00

PATIENT
  Sex: Male
  Weight: 71.732 kg

DRUGS (4)
  1. NIASPAN [Suspect]
     Indication: BLOOD TRIGLYCERIDES INCREASED
     Dates: start: 20110509
  2. MULTI-VITAMIN [Concomitant]
     Indication: VITAMIN SUPPLEMENTATION
  3. METOPROLOL TARTRATE [Concomitant]
     Indication: HYPERTENSION
  4. XANAX [Concomitant]
     Indication: ANXIETY

REACTIONS (2)
  - FEELING HOT [None]
  - MIDDLE INSOMNIA [None]
